FAERS Safety Report 14969090 (Version 2)
Quarter: 2018Q2

REPORT INFORMATION
  Report Type: Report from Study
  Country: IT (occurrence: IT)
  Receive Date: 20180604
  Receipt Date: 20180620
  Transmission Date: 20180711
  Serious: Yes (Other)
  Sender: FDA-Public Use
  Company Number: IT-BRISTOL-MYERS SQUIBB COMPANY-BMS-2018-049456

PATIENT
  Age: 46 Year
  Sex: Female

DRUGS (1)
  1. WARFARIN SODIUM. [Suspect]
     Active Substance: WARFARIN SODIUM
     Indication: AORTIC VALVE REPLACEMENT
     Dosage: UNK
     Route: 048

REACTIONS (3)
  - Prothrombin time ratio decreased [Recovering/Resolving]
  - Anaemia [Recovering/Resolving]
  - Dose calculation error [Recovering/Resolving]

NARRATIVE: CASE EVENT DATE: 20171124
